FAERS Safety Report 10672370 (Version 1)
Quarter: 2014Q4

REPORT INFORMATION
  Report Type: Report from Study
  Country: US (occurrence: US)
  Receive Date: 20141223
  Receipt Date: 20141223
  Transmission Date: 20150529
  Serious: Yes (Death, Other)
  Sender: FDA-Public Use
  Company Number: US-GILEAD-2014-0127761

PATIENT
  Age: 87 Year
  Sex: Male

DRUGS (8)
  1. METOPROLOL [Concomitant]
     Active Substance: METOPROLOL
     Indication: HYPERTENSION
     Dosage: UNK
  2. IDELALISIB [Suspect]
     Active Substance: IDELALISIB
     Indication: DIFFUSE LARGE B-CELL LYMPHOMA
     Dosage: 150 MG, UNK
     Route: 048
     Dates: start: 20141029, end: 20141113
  3. MULTIVITAMIN                       /00097801/ [Concomitant]
     Active Substance: VITAMINS
     Indication: VITAMIN SUPPLEMENTATION
  4. IDELALISIB [Suspect]
     Active Substance: IDELALISIB
     Indication: NON-HODGKIN^S LYMPHOMA
  5. ALLOPURINOL. [Concomitant]
     Active Substance: ALLOPURINOL
     Indication: GOUT
  6. VITAMIN C [Concomitant]
     Active Substance: ASCORBIC ACID
     Indication: VITAMIN SUPPLEMENTATION
  7. TIKOSYN [Concomitant]
     Active Substance: DOFETILIDE
     Indication: ATRIAL FIBRILLATION
  8. ENSURE [Concomitant]
     Active Substance: AMINO ACIDS\DEXTROSE\ELECTROLYTES NOS\SOYBEAN OIL\VITAMINS
     Indication: NUTRITIONAL SUPPLEMENTATION

REACTIONS (1)
  - Disease complication [Fatal]

NARRATIVE: CASE EVENT DATE: 20141213
